FAERS Safety Report 9364541 (Version 3)
Quarter: 2013Q3

REPORT INFORMATION
  Report Type: Spontaneous
  Country: JP (occurrence: JP)
  Receive Date: 20130624
  Receipt Date: 20130709
  Transmission Date: 20140515
  Serious: Yes (Death, Other)
  Sender: FDA-Public Use
  Company Number: JP-OTSUKA-JP-2013-12259

PATIENT
  Age: 59 Year
  Sex: Male
  Weight: 55.5 kg

DRUGS (5)
  1. BUSULFEX [Suspect]
     Indication: BONE MARROW CONDITIONING REGIMEN
     Dosage: 48.8 MG MILLIGRAM(S), QID
     Route: 041
     Dates: start: 20100309, end: 20100310
  2. FLUDARABINE [Suspect]
     Indication: BONE MARROW CONDITIONING REGIMEN
     Dosage: 50 MG MILLIGRAM(S), QD
     Route: 041
     Dates: start: 20100308, end: 20100313
  3. THYMOGLOBULINE [Suspect]
     Indication: PROPHYLAXIS AGAINST GRAFT VERSUS HOST DISEASE
     Dosage: 150 MG MILLIGRAM(S), QD
     Route: 041
     Dates: start: 20100312, end: 20100313
  4. PROGRAF [Suspect]
     Indication: PROPHYLAXIS AGAINST GRAFT VERSUS HOST DISEASE
     Dosage: 1 MG MILLIGRAM(S), QD
     Route: 041
     Dates: start: 20100314, end: 20100603
  5. ANTINEOPLASTIC AGENTS [Concomitant]
     Dosage: UNK
     Route: 028

REACTIONS (2)
  - Toxoplasmosis [Fatal]
  - Pneumonia [Unknown]
